FAERS Safety Report 9553731 (Version 2)
Quarter: 2013Q4

REPORT INFORMATION
  Report Type: Spontaneous
  Country: ES (occurrence: ES)
  Receive Date: 20130925
  Receipt Date: 20131017
  Transmission Date: 20140711
  Serious: Yes (Other)
  Sender: FDA-Public Use
  Company Number: ES-JNJFOC-20130911020

PATIENT
  Age: 66 Year
  Sex: Male

DRUGS (1)
  1. DOXORUBICIN HYDROCHLORIDE(CAELYX) [Suspect]
     Indication: KAPOSI^S SARCOMA
     Route: 042
     Dates: start: 20130712, end: 20130802

REACTIONS (2)
  - Penile ulceration [Recovered/Resolved]
  - Off label use [Unknown]
